FAERS Safety Report 9922338 (Version 2)
Quarter: 2014Q1

REPORT INFORMATION
  Report Type: Report from Study
  Country: MX (occurrence: MX)
  Receive Date: 20140225
  Receipt Date: 20140225
  Transmission Date: 20141002
  Serious: Yes (Other)
  Sender: FDA-Public Use
  Company Number: PHHY2012MX065680

PATIENT
  Age: 69 Year
  Sex: Female
  Weight: 94 kg

DRUGS (13)
  1. BUTILHIOSCINA [Concomitant]
     Dosage: 2 DF (10 MG), DAILY
  2. CO-DIOVAN [Suspect]
     Indication: HYPERTENSION
     Dosage: 1 TABLET (320/25 MG) DAILY
     Route: 048
     Dates: start: 201102, end: 201308
  3. CO-DIOVAN [Suspect]
     Indication: CARDIOVASCULAR DISORDER
  4. CO-DIOVAN [Suspect]
     Indication: OFF LABEL USE
  5. PHLEBODIA [Concomitant]
     Indication: CARDIOVASCULAR DISORDER
     Dosage: 1 TABLET (600MG) EVERY 24 HOURS
     Dates: start: 201204
  6. ATIVAN [Concomitant]
     Indication: INSOMNIA
     Dosage: 0.5 DF, UNK
     Dates: start: 201010
  7. FLUOXETINE [Concomitant]
     Indication: DEPRESSION
     Dosage: HALF TABLET DAILY
     Dates: start: 201010
  8. ASPIRIN PROTECT [Concomitant]
     Indication: CEREBROVASCULAR ACCIDENT PROPHYLAXIS
     Dosage: 1 DF, QD
     Dates: start: 2007
  9. SERTRALINE [Concomitant]
     Dosage: 50 MG, DAILY
  10. NIFEDIPINE [Concomitant]
     Dosage: 30 MG, DAILY
  11. LIPITOR [Concomitant]
     Dosage: 20 MG, DAILY
  12. LORAZEPAM [Concomitant]
     Dosage: 1 MG, DAILY
  13. RANITIDINE [Concomitant]
     Dosage: 150 MG, UNK

REACTIONS (2)
  - Lens dislocation [Recovered/Resolved]
  - Gastritis [Not Recovered/Not Resolved]
